FAERS Safety Report 5981151-7 (Version None)
Quarter: 2008Q4

REPORT INFORMATION
  Report Type: 
  Country: None (occurrence: None)
  Receive Date: 20081205
  Receipt Date: 20081126
  Transmission Date: 20090506
  Serious: Yes (Hospitalization)
  Sender: FDA-Public Use
  Company Number: A0753418A

PATIENT
  Age: 66 Year
  Sex: Female

DRUGS (13)
  1. ROPINIROLE HYDROCHLORIDE [Suspect]
     Indication: PARKINSON'S DISEASE
     Route: 048
     Dates: start: 20080923
  2. AZILECT [Concomitant]
     Dosage: 1MG PER DAY
     Route: 048
     Dates: start: 20060915
  3. SINEMET [Concomitant]
     Dosage: 1TAB THREE TIMES PER DAY
     Route: 048
     Dates: start: 20041001
  4. SINEMET [Concomitant]
     Route: 048
     Dates: start: 20080222
  5. COMTAN [Concomitant]
     Dosage: 200MG FOUR TIMES PER DAY
     Route: 048
     Dates: start: 20080222
  6. LEVOTHYROXINE SODIUM [Concomitant]
     Dosage: 150MCG PER DAY
     Route: 048
     Dates: start: 19750101
  7. RANITIDINE [Concomitant]
     Dosage: 300MG PER DAY
     Route: 048
     Dates: start: 20070101, end: 20081003
  8. VESICARE [Concomitant]
     Dosage: 5MG PER DAY
     Route: 048
     Dates: start: 20060101
  9. COLACE [Concomitant]
     Dosage: 100MG PER DAY
     Route: 048
     Dates: start: 20050101
  10. IBUPROFEN TABLETS [Concomitant]
     Dosage: 200MG THREE TIMES PER DAY
     Route: 048
     Dates: start: 20040101, end: 20080925
  11. MULTI-VITAMIN [Concomitant]
     Dosage: 1TAB PER DAY
     Route: 048
     Dates: start: 19880101
  12. MIRAPEX [Concomitant]
     Indication: PARKINSON'S DISEASE
     Dosage: 1MG THREE TIMES PER DAY
     Route: 048
     Dates: start: 20070827, end: 20080922
  13. MIRAPEX [Concomitant]
     Dosage: .5MG THREE TIMES PER DAY
     Route: 048
     Dates: start: 20080923, end: 20081008

REACTIONS (3)
  - DYSPNOEA [None]
  - GASTROINTESTINAL HAEMORRHAGE [None]
  - HAEMOGLOBIN DECREASED [None]
